FAERS Safety Report 12857044 (Version 1)
Quarter: 2016Q4

REPORT INFORMATION
  Report Type: Spontaneous
  Country: US (occurrence: US)
  Receive Date: 20161018
  Receipt Date: 20161018
  Transmission Date: 20170207
  Serious: No
  Sender: FDA-Public Use
  Company Number: US-BIOGEN-2016BI00303431

PATIENT
  Sex: Female

DRUGS (1)
  1. TECFIDERA [Suspect]
     Active Substance: DIMETHYL FUMARATE
     Indication: MULTIPLE SCLEROSIS
     Route: 065
     Dates: start: 20140310

REACTIONS (6)
  - Oesophageal stenosis [Recovered/Resolved]
  - Adverse drug reaction [Unknown]
  - Central nervous system lesion [Not Recovered/Not Resolved]
  - Rash [Recovered/Resolved]
  - General physical health deterioration [Unknown]
  - Eating disorder [Unknown]
